FAERS Safety Report 4843885-7 (Version None)
Quarter: 2005Q4

REPORT INFORMATION
  Report Type: 
  Country: None (occurrence: None)
  Receive Date: 20051130
  Receipt Date: 20051130
  Transmission Date: 20060501
  Serious: No
  Sender: FDA-Public Use
  Company Number: None

PATIENT
  Sex: Female
  Weight: 44.4525 kg

DRUGS (5)
  1. LUPRON [Suspect]
     Indication: ENDOMETRIOSIS
     Dosage: MONTHLY INJECTIONS   MONTHLY FOR 6 MON.
     Dates: start: 20010101, end: 20020601
  2. SALSULATE [Concomitant]
  3. PREDNISONE [Concomitant]
  4. NORTRIPILYNE [Concomitant]
  5. FOSAMAX [Concomitant]

REACTIONS (12)
  - AMNESIA [None]
  - ARTHRALGIA [None]
  - AUTOIMMUNE DISORDER [None]
  - BLOOD PRESSURE INCREASED [None]
  - BONE PAIN [None]
  - HEADACHE [None]
  - INFLAMMATION [None]
  - MIGRAINE [None]
  - NAUSEA [None]
  - NEUROPATHY PERIPHERAL [None]
  - PALPITATIONS [None]
  - RENAL DISORDER [None]
